FAERS Safety Report 5507515-3 (Version None)
Quarter: 2007Q4

REPORT INFORMATION
  Report Type: 
  Country: None (occurrence: None)
  Receive Date: 20071105
  Receipt Date: 20071105
  Transmission Date: 20080405
  Serious: Yes (Other)
  Sender: FDA-Public Use
  Company Number: None

PATIENT
  Sex: Female
  Weight: 81.6475 kg

DRUGS (1)
  1. BENADRYL [Suspect]
     Indication: RASH
     Dosage: TOO LONG AGO TO REMEMBER
     Dates: start: 19970802, end: 19970804

REACTIONS (2)
  - FEELING ABNORMAL [None]
  - VISUAL DISTURBANCE [None]
